FAERS Safety Report 23250128 (Version 1)
Quarter: 2023Q4

REPORT INFORMATION
  Report Type: Other
  Country: None (occurrence: NL)
  Receive Date: 20231201
  Receipt Date: 20231201
  Transmission Date: 20240110
  Serious: Yes (Life-Threatening, Hospitalization, Other)
  Sender: FDA-Public Use
  Company Number: NL-Everest Life Sciences LLC-2148897

PATIENT
  Sex: Male

DRUGS (4)
  1. DAPSONE [Suspect]
     Active Substance: DAPSONE
     Indication: Product used for unknown indication
     Route: 048
  2. METOPROLOL [Concomitant]
     Active Substance: METOPROLOL
     Route: 048
  3. FERROUS FUMARATE [Concomitant]
     Active Substance: FERROUS FUMARATE
     Route: 048
  4. METHOTREXATE [Concomitant]
     Active Substance: METHOTREXATE
     Route: 048

REACTIONS (15)
  - Pulmonary artery thrombosis [Recovered/Resolved]
  - Hypoxia [Recovered/Resolved]
  - Toxicity to various agents [Recovered/Resolved]
  - Abdominal discomfort [Recovered/Resolved]
  - Confusional state [Recovered/Resolved]
  - Taste disorder [Recovered/Resolved]
  - Cyanosis central [Recovered/Resolved]
  - Hepatitis [Recovered/Resolved]
  - Methaemoglobinaemia [Recovered/Resolved]
  - Nausea [Recovered/Resolved]
  - Vomiting [Recovered/Resolved]
  - Blood glucose increased [Recovered/Resolved]
  - Blood lactic acid increased [Recovered/Resolved]
  - White blood cell count increased [Recovered/Resolved]
  - Intentional overdose [Unknown]
